FAERS Safety Report 9665961 (Version 9)
Quarter: 2014Q3

REPORT INFORMATION
  Report Type: Spontaneous
  Country: US (occurrence: None)
  Receive Date: 20131126
  Receipt Date: 20140805
  Transmission Date: 20150326
  Serious: Yes (Hospitalization, Other)
  Sender: FDA-Public Use
  Company Number: 2013US002745

PATIENT
  Age: 47 Year
  Sex: Female
  Weight: 151 kg

DRUGS (8)
  1. PONATINIB [Suspect]
     Active Substance: PONATINIB
     Indication: CHRONIC MYELOID LEUKAEMIA
     Route: 048
     Dates: start: 20110722, end: 20131021
  2. FLONASE (FLUTICASONE PROPINONATE) [Concomitant]
  3. LANSOPRAZOLE (LANSOPRAZOLE) [Concomitant]
     Active Substance: LANSOPRAZOLE
  4. LISINOPRIL (LISINOPRIL) TABLET [Concomitant]
  5. METFORMIN [Concomitant]
     Active Substance: METFORMIN HYDROCHLORIDE
  6. LEVOTHROID (LEVOTHYROXINE SODIUM) TABLET [Concomitant]
  7. AMLODIPINE BESYLATE (AMLODIPINE BESYLATE) [Concomitant]
  8. MOTRIN [Concomitant]
     Active Substance: IBUPROFEN

REACTIONS (28)
  - Dysarthria [None]
  - Convulsion [None]
  - Depression [None]
  - Glycosylated haemoglobin increased [None]
  - Rash [None]
  - Cerebral artery occlusion [None]
  - Hemiparesis [None]
  - Constipation [None]
  - Asthenia [None]
  - Cerebrovascular accident [None]
  - Heart rate increased [None]
  - Vomiting [None]
  - Yawning [None]
  - Cerebral artery embolism [None]
  - Anxiety [None]
  - Blood cholesterol increased [None]
  - Low density lipoprotein increased [None]
  - Hypoaesthesia [None]
  - Dizziness [None]
  - Alopecia [None]
  - Cerebral artery stenosis [None]
  - Nausea [None]
  - Cerebral ischaemia [None]
  - Carotid artery stenosis [None]
  - JC virus test positive [None]
  - Embolic cerebral infarction [None]
  - Blood thyroid stimulating hormone increased [None]
  - Moyamoya disease [None]

NARRATIVE: CASE EVENT DATE: 20131113
